FAERS Safety Report 5764011-6 (Version None)
Quarter: 2008Q2

REPORT INFORMATION
  Report Type: 
  Country: None (occurrence: None)
  Receive Date: 20080602
  Receipt Date: 20080212
  Transmission Date: 20081010
  Serious: No
  Sender: FDA-Public Use
  Company Number: PHEH2008US01823

PATIENT
  Age: 58 Year
  Sex: Male
  Weight: 80.3 kg

DRUGS (1)
  1. TEKTURNA [Suspect]
     Indication: HYPERTENSION
     Dosage: 150 MG, QD
     Dates: start: 20071111

REACTIONS (4)
  - DIARRHOEA [None]
  - FEELING ABNORMAL [None]
  - PALPITATIONS [None]
  - TREATMENT NONCOMPLIANCE [None]
